FAERS Safety Report 4382279-8 (Version None)
Quarter: 2004Q2

REPORT INFORMATION
  Report Type: 
  Country: None (occurrence: None)
  Receive Date: 20040615
  Receipt Date: 20040603
  Transmission Date: 20050107
  Serious: Yes (Death)
  Sender: FDA-Public Use
  Company Number: US-JNJFOC-20040601907

PATIENT
  Age: 42 Year
  Sex: Female

DRUGS (2)
  1. EXTRA STRENGTH TYLENOL [Suspect]
     Indication: PAIN
     Dosage: APPROXIMATELY 1000 MG, Q 4-6 HOURS
     Dates: start: 20000501, end: 20020501
  2. THERAPY UNSPECIFIED (ALL OTHER THERAPEUTICS PRODUCTS) [Suspect]
     Indication: PAIN

REACTIONS (2)
  - HEPATOCELLULAR DAMAGE [None]
  - RENAL IMPAIRMENT [None]
